FAERS Safety Report 5975040-1 (Version None)
Quarter: 2008Q4

REPORT INFORMATION
  Report Type: 
  Country: None (occurrence: None)
  Receive Date: 20081128
  Receipt Date: 20081120
  Transmission Date: 20090506
  Serious: Yes (Other)
  Sender: FDA-Public Use
  Company Number: 100#08#2008-05684

PATIENT
  Age: 68 Year
  Sex: Male

DRUGS (4)
  1. ETHAMBUTOL HCL [Suspect]
     Indication: PLEURAL EFFUSION
  2. RIFAMPICIN [Suspect]
     Indication: PLEURAL EFFUSION
     Dosage: 150 MG (UNKNOWN FREQUENCY)
  3. ISONIAZID [Suspect]
     Indication: PLEURAL EFFUSION
  4. PYRAZINAMIDE [Suspect]
     Indication: PLEURAL EFFUSION
     Dosage: 500 MG (UNKNOWN FREQUENCY)

REACTIONS (12)
  - BLEEDING TIME ABNORMAL [None]
  - COAGULATION TIME SHORTENED [None]
  - COUGH [None]
  - DECREASED APPETITE [None]
  - DYSPNOEA [None]
  - PLEURAL EFFUSION [None]
  - PYREXIA [None]
  - RASH ERYTHEMATOUS [None]
  - RASH GENERALISED [None]
  - RASH MACULO-PAPULAR [None]
  - THROMBOCYTOPENIA [None]
  - TUBERCULOSIS [None]
